FAERS Safety Report 17593505 (Version 2)
Quarter: 2020Q1

REPORT INFORMATION
  Report Type: Spontaneous
  Country: FR (occurrence: FR)
  Receive Date: 20200327
  Receipt Date: 20200331
  Transmission Date: 20200409
  Serious: Yes (Hospitalization)
  Sender: FDA-Public Use
  Company Number: FR-BAUSCH-BL-2020-009334

PATIENT
  Age: 46 Year
  Sex: Female

DRUGS (6)
  1. FIVASA [Concomitant]
     Indication: PRODUCT USED FOR UNKNOWN INDICATION
     Route: 048
  2. TRAMADOL. [Concomitant]
     Active Substance: TRAMADOL
     Indication: PRODUCT USED FOR UNKNOWN INDICATION
     Route: 048
  3. COLOKIT [Suspect]
     Active Substance: SODIUM PHOSPHATE, DIBASIC, ANHYDROUS\SODIUM PHOSPHATE, MONOBASIC, MONOHYDRATE
     Indication: ENEMA ADMINISTRATION
     Route: 048
     Dates: start: 20200109, end: 20200109
  4. OMEPRAZOLE. [Concomitant]
     Active Substance: OMEPRAZOLE
     Indication: PRODUCT USED FOR UNKNOWN INDICATION
     Route: 048
  5. ZALDIAR [Concomitant]
     Active Substance: ACETAMINOPHEN\TRAMADOL HYDROCHLORIDE
     Indication: PRODUCT USED FOR UNKNOWN INDICATION
     Dosage: 37.5 MG/325 MG
     Route: 048
  6. HUMIRA [Concomitant]
     Active Substance: ADALIMUMAB
     Indication: PRODUCT USED FOR UNKNOWN INDICATION
     Route: 058

REACTIONS (2)
  - Abdominal pain [Not Recovered/Not Resolved]
  - Colitis ischaemic [Not Recovered/Not Resolved]

NARRATIVE: CASE EVENT DATE: 20200109
